FAERS Safety Report 13653824 (Version 2)
Quarter: 2017Q3

REPORT INFORMATION
  Report Type: Report from Study
  Country: CO (occurrence: CO)
  Receive Date: 20170614
  Receipt Date: 20170704
  Transmission Date: 20171127
  Serious: Yes (Other)
  Sender: FDA-Public Use
  Company Number: PHHY2017CO078644

PATIENT
  Age: 66 Year
  Sex: Male
  Weight: 78 kg

DRUGS (3)
  1. OXYCODONE [Concomitant]
     Active Substance: OXYCODONE
     Indication: PRODUCT USED FOR UNKNOWN INDICATION
     Route: 065
  2. RANITIDINE. [Concomitant]
     Active Substance: RANITIDINE
     Indication: PRODUCT USED FOR UNKNOWN INDICATION
     Route: 065
  3. VOTRIENT [Suspect]
     Active Substance: PAZOPANIB HYDROCHLORIDE
     Indication: RENAL CELL CARCINOMA
     Dosage: 4 DF, QD
     Route: 048
     Dates: start: 20170421, end: 20170528

REACTIONS (20)
  - Malignant neoplasm progression [Unknown]
  - Yellow skin [Unknown]
  - Inflammation [Unknown]
  - Erythema [Unknown]
  - Proctalgia [Recovered/Resolved]
  - Haematoma [Recovered/Resolved]
  - Loss of consciousness [Unknown]
  - Feeding disorder [Unknown]
  - Wound [Unknown]
  - Mouth ulceration [Unknown]
  - Dry skin [Unknown]
  - Renal cell carcinoma [Unknown]
  - Metastases to lymph nodes [Unknown]
  - Skin exfoliation [Recovered/Resolved]
  - Asthenia [Not Recovered/Not Resolved]
  - Tongue ulceration [Recovered/Resolved]
  - Oropharyngeal plaque [Unknown]
  - Pharyngeal oedema [Recovering/Resolving]
  - Psychiatric symptom [Not Recovered/Not Resolved]
  - Dysphagia [Recovering/Resolving]

NARRATIVE: CASE EVENT DATE: 20170430
